FAERS Safety Report 7761344-9 (Version None)
Quarter: 2011Q3

REPORT INFORMATION
  Report Type: 
  Country: None (occurrence: None)
  Receive Date: 20110920
  Receipt Date: 20110915
  Transmission Date: 20111222
  Serious: No
  Sender: FDA-Public Use
  Company Number: US-PFIZER INC-2011177556

PATIENT
  Sex: Male
  Weight: 68.027 kg

DRUGS (1)
  1. ZOLOFT [Suspect]
     Dosage: 100 MG, DAILY
     Route: 048
     Dates: start: 20060101

REACTIONS (1)
  - DRUG INEFFECTIVE [None]
